FAERS Safety Report 21119862 (Version 1)
Quarter: 2022Q3

REPORT INFORMATION
  Report Type: Spontaneous
  Country: CA (occurrence: CA)
  Receive Date: 20220722
  Receipt Date: 20220722
  Transmission Date: 20221027
  Serious: Yes (Other)
  Sender: FDA-Public Use
  Company Number: CA-GLAXOSMITHKLINE-CA2022AMR029521

PATIENT

DRUGS (10)
  1. ALBUTEROL SULFATE [Suspect]
     Active Substance: ALBUTEROL SULFATE
     Indication: Upper respiratory tract infection
     Dosage: 100 UG(EVERY 4 HOURS)
     Route: 055
     Dates: start: 2016
  2. FLUTICASONE PROPIONATE [Suspect]
     Active Substance: FLUTICASONE PROPIONATE
     Indication: Upper respiratory tract infection
     Dosage: 250 UG, BID
     Route: 055
     Dates: start: 2016
  3. ALBUTEROL [Suspect]
     Active Substance: ALBUTEROL
     Indication: Upper respiratory tract infection
     Dosage: 100 UG(EVERY 4 HOURS)
     Route: 055
     Dates: start: 2016
  4. FLUTICASONE PROPIONATE [Suspect]
     Active Substance: FLUTICASONE PROPIONATE
     Indication: Upper respiratory tract infection
     Dosage: 250 UG, BID 2 EVERY 1 DAYS
     Route: 055
     Dates: start: 2016
  5. ALBUTEROL [Suspect]
     Active Substance: ALBUTEROL
     Indication: Upper respiratory tract infection
     Dosage: 100 UG, EVERY 4 HOURS
     Route: 055
     Dates: start: 2016
  6. ALBUTEROL [Suspect]
     Active Substance: ALBUTEROL
     Dosage: 100 UG, Z EVERY 4 HOURS
     Dates: start: 2016
  7. ALBUTEROL [Suspect]
     Active Substance: ALBUTEROL
     Dosage: 100 UG, Z EVERY 4 HOURS
  8. FLUTICASONE PROPIONATE [Suspect]
     Active Substance: FLUTICASONE PROPIONATE
     Indication: Upper respiratory tract infection
     Dosage: 250 UG, BID
     Route: 055
     Dates: start: 2016
  9. FLUTICASONE PROPIONATE [Suspect]
     Active Substance: FLUTICASONE PROPIONATE
     Indication: Sinusitis
     Dosage: 250 UG, BID 2 EVERY 1 DAYS
  10. AMOXICILLIN [Concomitant]
     Active Substance: AMOXICILLIN
     Indication: Sinusitis
     Dosage: 1000 MG, BID 2 EVERY 1 DAYS
     Route: 048

REACTIONS (5)
  - Headache [Recovered/Resolved]
  - Oropharyngeal pain [Recovered/Resolved]
  - Nausea [Recovered/Resolved]
  - Oral pain [Recovered/Resolved]
  - Stomatitis [Recovered/Resolved]

NARRATIVE: CASE EVENT DATE: 20160101
